FAERS Safety Report 6004726-8 (Version None)
Quarter: 2008Q4

REPORT INFORMATION
  Report Type: 
  Country: None (occurrence: None)
  Receive Date: 20081216
  Receipt Date: 20081209
  Transmission Date: 20090506
  Serious: No
  Sender: FDA-Public Use
  Company Number: US-B.I. PHARMACEUTICALS,INC./RIDGEFIELD-2008-BP-13822BP

PATIENT
  Age: 57 Year
  Sex: Male

DRUGS (1)
  1. FLOMAX [Suspect]
     Indication: BENIGN PROSTATIC HYPERPLASIA
     Dosage: .4MG
     Route: 048
     Dates: start: 20080301

REACTIONS (8)
  - ABDOMINAL DISTENSION [None]
  - DIZZINESS [None]
  - DRY MOUTH [None]
  - DYSGEUSIA [None]
  - HEADACHE [None]
  - NAUSEA [None]
  - PERIPHERAL COLDNESS [None]
  - RHINORRHOEA [None]
